FAERS Safety Report 12920734 (Version 1)
Quarter: 2016Q4

REPORT INFORMATION
  Report Type: Spontaneous
  Country: DK (occurrence: DK)
  Receive Date: 20161107
  Receipt Date: 20161107
  Transmission Date: 20170207
  Serious: Yes (Death)
  Sender: FDA-Public Use
  Company Number: DK-JNJFOC-20161024491

PATIENT
  Age: 81 Year
  Sex: Male

DRUGS (5)
  1. SPIRONOLACTONE. [Concomitant]
     Active Substance: SPIRONOLACTONE
     Indication: OEDEMA
     Dates: start: 20121211
  2. DIGOXIN DAK [Concomitant]
     Active Substance: DIGOXIN
     Indication: ATRIAL FIBRILLATION
     Route: 065
     Dates: start: 20121210
  3. XARELTO [Suspect]
     Active Substance: RIVAROXABAN
     Indication: THROMBOSIS PROPHYLAXIS
     Route: 048
     Dates: start: 20121210
  4. FUROSEMIDE. [Concomitant]
     Active Substance: FUROSEMIDE
     Indication: OEDEMA
     Route: 065
     Dates: start: 20121211
  5. METOPROLOL SUCCINATE. [Concomitant]
     Active Substance: METOPROLOL SUCCINATE
     Indication: ATRIAL FIBRILLATION
     Route: 065
     Dates: start: 20121212

REACTIONS (17)
  - Intraventricular haemorrhage [Fatal]
  - Brain injury [Fatal]
  - Hydrocephalus [Fatal]
  - Heart rate decreased [Unknown]
  - Nystagmus [Unknown]
  - Headache [Unknown]
  - Dizziness [Unknown]
  - Dyspnoea [Unknown]
  - Nausea [Unknown]
  - Oxygen saturation decreased [Unknown]
  - Pupillary reflex impaired [Unknown]
  - Depressed level of consciousness [Unknown]
  - Brain stem syndrome [Fatal]
  - Vomiting [Unknown]
  - Cerebellar haemorrhage [Fatal]
  - Endotracheal intubation [Unknown]
  - Hypertension [Unknown]

NARRATIVE: CASE EVENT DATE: 20161002
